FAERS Safety Report 9119296 (Version 4)
Quarter: 2013Q2

REPORT INFORMATION
  Report Type: Spontaneous
  Country: JP (occurrence: JP)
  Receive Date: 20130226
  Receipt Date: 20130426
  Transmission Date: 20140414
  Serious: Yes (Other)
  Sender: FDA-Public Use
  Company Number: PHHY2013JP017625

PATIENT
  Age: 62 Year
  Sex: Female
  Weight: 61 kg

DRUGS (2)
  1. FEMARA [Suspect]
     Indication: BREAST CANCER
     Dosage: 2.5 MG, QD
     Route: 048
     Dates: start: 20100804
  2. FEMARA [Suspect]
     Dosage: 2.5 MG, DAILY
     Route: 048
     Dates: start: 201106

REACTIONS (7)
  - Organising pneumonia [Recovered/Resolved]
  - Lung consolidation [Unknown]
  - Lung infiltration [Unknown]
  - Pulmonary mass [Unknown]
  - Inflammation [Unknown]
  - Bacterial infection [Unknown]
  - Pneumonia bacterial [Recovered/Resolved]
